FAERS Safety Report 22534700 (Version 1)
Quarter: 2023Q2

REPORT INFORMATION
  Report Type: Spontaneous
  Country: US (occurrence: US)
  Receive Date: 20230608
  Receipt Date: 20230608
  Transmission Date: 20230722
  Serious: Yes (Other)
  Sender: FDA-Public Use
  Company Number: US-drreddys-SPO/USA/23/0166339

PATIENT
  Age: 41 Year
  Sex: Male

DRUGS (1)
  1. DEXAMETHASONE [Suspect]
     Active Substance: DEXAMETHASONE
     Indication: Pharyngitis streptococcal

REACTIONS (2)
  - Herpes simplex oesophagitis [Recovering/Resolving]
  - Product use in unapproved indication [Unknown]
